FAERS Safety Report 17724838 (Version 1)
Quarter: 2020Q2

REPORT INFORMATION
  Report Type: Spontaneous
  Country: US (occurrence: US)
  Receive Date: 20200429
  Receipt Date: 20200429
  Transmission Date: 20200714
  Serious: Yes (Hospitalization)
  Sender: FDA-Public Use
  Company Number: None

PATIENT
  Age: 61 Year
  Sex: Female

DRUGS (9)
  1. OMEPRAZOLE. [Concomitant]
     Active Substance: OMEPRAZOLE
  2. PRAMIPEXOLE. [Concomitant]
     Active Substance: PRAMIPEXOLE
  3. REPATHA [Suspect]
     Active Substance: EVOLOCUMAB
     Indication: HYPERCHOLESTEROLAEMIA
     Dosage: Q2WEEKS
     Route: 058
  4. RITUXAN [Concomitant]
     Active Substance: RITUXIMAB
  5. HYDROCODONE [Concomitant]
     Active Substance: HYDROCODONE
  6. APAP/CODEINE [Concomitant]
     Active Substance: ACETAMINOPHEN\CODEINE PHOSPHATE
  7. ZOL PIDEM [Concomitant]
  8. ATOWASTATI N [Concomitant]
  9. LEFLUNAMIDE [Concomitant]
     Active Substance: LEFLUNOMIDE

REACTIONS (2)
  - Complication of device insertion [None]
  - Hip surgery [None]
